FAERS Safety Report 16939942 (Version 2)
Quarter: 2019Q4

REPORT INFORMATION
  Report Type: Spontaneous
  Country: FR (occurrence: FR)
  Receive Date: 20191021
  Receipt Date: 20191223
  Transmission Date: 20200122
  Serious: Yes (Hospitalization)
  Sender: FDA-Public Use
  Company Number: FR-SUN PHARMACEUTICAL INDUSTRIES LTD-2019RR-224260

PATIENT
  Age: 45 Year
  Sex: Female
  Weight: 108 kg

DRUGS (6)
  1. SUMATRIPTAN. [Suspect]
     Active Substance: SUMATRIPTAN
     Indication: INTENTIONAL OVERDOSE
     Dosage: NP ()
     Route: 048
     Dates: start: 20180509, end: 20180509
  2. ZOPICLONE [Suspect]
     Active Substance: ZOPICLONE
     Indication: INTENTIONAL OVERDOSE
     Dosage: NP ()
     Route: 048
     Dates: start: 20180509, end: 20180509
  3. ACTISKENAN [Suspect]
     Active Substance: MORPHINE SULFATE
     Indication: INTENTIONAL OVERDOSE
     Dosage: NP ()
     Route: 048
     Dates: start: 20180509, end: 20180509
  4. SKENAN L.P. 100 MG, MICROGRANULES A LIBERATION PROLONGEE EN GELULE [Suspect]
     Active Substance: MORPHINE SULFATE
     Indication: INTENTIONAL OVERDOSE
     Dosage: NP ()
     Route: 048
     Dates: start: 20180509, end: 20180509
  5. LAROXYL [Suspect]
     Active Substance: AMITRIPTYLINE HYDROCHLORIDE
     Indication: INTENTIONAL OVERDOSE
     Dosage: NP ()
     Route: 048
     Dates: start: 20180509, end: 20180509
  6. DOLIPRANE [Suspect]
     Active Substance: ACETAMINOPHEN
     Indication: INTENTIONAL OVERDOSE
     Dosage: NP ()
     Route: 048
     Dates: start: 20180509, end: 20180509

REACTIONS (2)
  - Poisoning deliberate [Recovered/Resolved]
  - Somnolence [Recovered/Resolved]

NARRATIVE: CASE EVENT DATE: 20180509
